FAERS Safety Report 9511303 (Version 1)
Quarter: 2013Q3

REPORT INFORMATION
  Report Type: Spontaneous
  Country: US (occurrence: None)
  Receive Date: 20130909
  Receipt Date: 20130909
  Transmission Date: 20140515
  Serious: Yes (Other)
  Sender: FDA-Public Use
  Company Number: None

PATIENT
  Age: 18 Year
  Sex: Female

DRUGS (1)
  1. Z-PAK [Suspect]
     Indication: PHARYNGITIS STREPTOCOCCAL

REACTIONS (4)
  - Rash generalised [None]
  - Vomiting [None]
  - Diarrhoea [None]
  - Joint stiffness [None]
